FAERS Safety Report 12099369 (Version 1)
Quarter: 2016Q1

REPORT INFORMATION
  Report Type: Spontaneous
  Country: US (occurrence: US)
  Receive Date: 20160222
  Receipt Date: 20160222
  Transmission Date: 20160526
  Serious: Yes (Other)
  Sender: FDA-Public Use
  Company Number: US-TEVA-540496USA

PATIENT
  Age: 25 Year
  Sex: Female
  Weight: 104.42 kg

DRUGS (5)
  1. GLUTAMINE [Suspect]
     Active Substance: GLUTAMINE
     Indication: SUPPLEMENTATION THERAPY
     Dosage: 3 DOSAGE FORMS DAILY;
     Route: 048
     Dates: start: 20150105, end: 20150108
  2. OMEGA 3 [Concomitant]
     Active Substance: OMEGA-3 FATTY ACIDS
  3. MULTIVITAMIN [Concomitant]
     Active Substance: VITAMINS
  4. AMOXICILLIN. [Suspect]
     Active Substance: AMOXICILLIN
     Route: 065
  5. COCONUT OIL [Concomitant]
     Active Substance: COCONUT OIL

REACTIONS (8)
  - Pruritus [Recovered/Resolved]
  - Eye swelling [Recovered/Resolved]
  - Mouth swelling [Recovered/Resolved]
  - Lip swelling [Recovered/Resolved]
  - Urticaria [Recovered/Resolved]
  - Erythema multiforme [Recovered/Resolved]
  - Peripheral swelling [Recovered/Resolved]
  - Swelling face [Recovered/Resolved]

NARRATIVE: CASE EVENT DATE: 20150108
